FAERS Safety Report 11658446 (Version 1)
Quarter: 2015Q4

REPORT INFORMATION
  Report Type: Report from Study
  Country: CA (occurrence: CA)
  Receive Date: 20151026
  Receipt Date: 20151026
  Transmission Date: 20160304
  Serious: Yes (Hospitalization, Other)
  Sender: FDA-Public Use
  Company Number: CA-TAKEDA-2015TUS011290

PATIENT
  Age: 60 Year
  Sex: Female

DRUGS (9)
  1. ZANTAC [Concomitant]
     Active Substance: RANITIDINE HYDROCHLORIDE
     Dosage: 75 MG, UNK
     Route: 048
  2. PMS-GABAPENTIN [Concomitant]
     Dosage: 100 MG, TID
     Route: 065
  3. CO ETIDROCAL [Concomitant]
     Active Substance: CALCIUM CARBONATE\ETIDRONATE DISODIUM
     Dosage: UNK MG, QD
     Route: 048
  4. ENTOCORT [Concomitant]
     Active Substance: BUDESONIDE
     Dosage: UNK
     Route: 065
  5. VITAMIN D [Concomitant]
     Active Substance: CHOLECALCIFEROL
     Dosage: 1000 IU, TID
     Route: 065
  6. VEDOLIZUMAB [Suspect]
     Active Substance: VEDOLIZUMAB
     Indication: CROHN^S DISEASE
     Dosage: 300 MG, UNK
     Route: 042
     Dates: start: 20150710
  7. STATEX                             /00036302/ [Concomitant]
     Dosage: 5 MG, UNK
     Route: 048
  8. APO-ONDANSETRON [Concomitant]
     Dosage: 8 MG, BID
     Route: 048
  9. LANSOPRAZOLE TEVA [Concomitant]
     Dosage: 30 MG, BID
     Route: 048

REACTIONS (8)
  - Fatigue [Not Recovered/Not Resolved]
  - Off label use [Unknown]
  - Anaemia [Unknown]
  - Myalgia [Unknown]
  - Abdominal pain [Not Recovered/Not Resolved]
  - Volvulus [Unknown]
  - Depression [Unknown]
  - Constipation [Not Recovered/Not Resolved]

NARRATIVE: CASE EVENT DATE: 201507
